FAERS Safety Report 7561466-1 (Version None)
Quarter: 2011Q2

REPORT INFORMATION
  Report Type: 
  Country: None (occurrence: None)
  Receive Date: 20110621
  Receipt Date: 20110124
  Transmission Date: 20111010
  Serious: No
  Sender: FDA-Public Use
  Company Number: US-ASTRAZENECA-2011SE04508

PATIENT
  Age: 54 Year
  Sex: Female

DRUGS (2)
  1. PULMICORT FLEXHALER [Suspect]
     Route: 055
  2. ADVAIR DISKUS 100/50 [Concomitant]

REACTIONS (2)
  - HEADACHE [None]
  - SINUS HEADACHE [None]
